FAERS Safety Report 8876077 (Version 6)
Quarter: 2014Q1

REPORT INFORMATION
  Report Type: Report from Study
  Country: DE (occurrence: DE)
  Receive Date: 20121023
  Receipt Date: 20140306
  Transmission Date: 20141002
  Serious: Yes (Death, Hospitalization, Other)
  Sender: FDA-Public Use
  Company Number: DE-OTSUKA-EU-2011-10178

PATIENT
  Age: 60 Year
  Sex: Female
  Weight: 55 kg

DRUGS (36)
  1. SAMSCA [Suspect]
     Indication: INAPPROPRIATE ANTIDIURETIC HORMONE SECRETION
     Dosage: 7.5 MG MILLIGRAM(S), DAILY DOSE
     Route: 048
     Dates: start: 20110113, end: 20120305
  2. SAMSCA [Suspect]
     Dosage: 15 MG MILLIGRAM(S), DAILY DOSE
     Route: 048
     Dates: start: 20120305, end: 20120307
  3. SAMSCA [Suspect]
     Dosage: 30 MG MILLIGRAM(S), DAILY DOSE
     Route: 048
     Dates: start: 20120308, end: 20120308
  4. SAMSCA [Suspect]
     Dosage: 15 MG MILLIGRAM(S), DAILY DOSE
     Route: 048
     Dates: start: 20120309, end: 20120403
  5. SAMSCA [Suspect]
     Dosage: 30 MG MILLIGRAM(S), DAILY DOSE
     Route: 048
     Dates: start: 20120403, end: 20120925
  6. SAMSCA [Suspect]
     Dosage: 15 MG MILLIGRAM(S), DAILY DOSE
     Route: 048
     Dates: start: 20120926, end: 20120930
  7. SAMSCA [Suspect]
     Dosage: 7.5 MG MILLIGRAM(S), DAILY DOSE
     Route: 048
     Dates: start: 20121001, end: 201211
  8. SALINE [Concomitant]
     Dosage: 200 MEQ, DAILY DOSE
     Dates: start: 20110126, end: 20110126
  9. LOSARTAN [Concomitant]
     Indication: HYPERTENSION
     Dosage: 25 MG MILLIGRAM(S), DAILY DOSE
     Route: 048
     Dates: start: 2011, end: 20120925
  10. LOSARTAN [Concomitant]
     Indication: RENAL FAILURE CHRONIC
  11. TORASEMID [Concomitant]
     Indication: RENAL FAILURE CHRONIC
     Dosage: 15 MG MILLIGRAM(S), DAILY DOSE
     Route: 048
     Dates: start: 2010, end: 201109
  12. ALLOPURINOL [Concomitant]
     Indication: HYPERURICAEMIA
     Dosage: 100 MG MILLIGRAM(S), DAILY DOSE
     Route: 048
     Dates: start: 2009, end: 201211
  13. PRESOMEN COMP [Concomitant]
     Indication: MENOPAUSAL SYMPTOMS
     Dosage: 0.6 MG MILLIGRAM(S), DAILY DOSE
     Route: 048
     Dates: end: 2012
  14. ROCALTROL [Concomitant]
     Indication: MULTIPLE ENDOCRINE NEOPLASIA TYPE 1
     Dosage: 0.25 ?G MICROGRAM(S), DAILY DOSE
     Route: 048
     Dates: start: 2009, end: 201211
  15. SANDOSTATIN [Concomitant]
     Indication: MULTIPLE ENDOCRINE NEOPLASIA TYPE 1
     Dosage: 30 MG MILLIGRAM(S), UNKNOWN
     Route: 058
     Dates: start: 2007, end: 201211
  16. ONBREZ [Concomitant]
     Indication: DYSPNOEA
     Dosage: 150 ?G MICROGRAM(S), DAILY DOSE
     Route: 055
     Dates: start: 2012, end: 201211
  17. NEBILET [Concomitant]
     Indication: HYPERTENSION
     Dosage: 5 MG MILLIGRAM(S), DAILY DOSE
     Route: 048
     Dates: start: 2007, end: 20120925
  18. NEBILET [Concomitant]
     Dosage: 2.5 MG MILLIGRAM(S), DAILY DOSE
     Route: 048
     Dates: start: 20120927, end: 201211
  19. ASS [Concomitant]
     Indication: ANGIOPLASTY
     Dosage: 100 MG MILLIGRAM(S), DAILY DOSE
     Route: 048
     Dates: start: 2009, end: 201211
  20. ASS [Concomitant]
     Indication: RENAL ARTERY STENOSIS
  21. SAB SIMPLEX [Concomitant]
     Indication: GASTRITIS
     Dosage: 90 DF DOSAGE FORM, DAILY DOSE
     Route: 048
     Dates: start: 2007, end: 20121002
  22. ESOMEPRAZOL [Concomitant]
     Indication: GASTROOESOPHAGEAL REFLUX DISEASE
     Dosage: 120 MG MILLIGRAM(S), DAILY DOSE
     Route: 048
     Dates: start: 2007, end: 201211
  23. L-THYROXIN [Concomitant]
     Indication: HYPERPARATHYROIDISM
     Dosage: 125 MCG, DAILY DOSE
     Route: 048
     Dates: start: 2007
  24. L-THYROXIN [Concomitant]
     Indication: THYROIDECTOMY
     Dosage: 150 MCG, DAILY DOSE
     Route: 048
     Dates: start: 20120928, end: 201211
  25. PANCREATIN [Concomitant]
     Indication: MULTIPLE ENDOCRINE NEOPLASIA TYPE 1
     Dosage: 3 DF DOSAGE FORM, DAILY DOSE
     Route: 048
     Dates: start: 2009, end: 201211
  26. AMITRIPTYLINE [Concomitant]
     Dosage: 25 MG MILLIGRAM(S), DAILY DOSE
     Route: 048
     Dates: start: 2007, end: 201211
  27. VALORON [Concomitant]
     Dosage: 50 MG MILLIGRAM(S), DAILY DOSE
     Route: 048
     Dates: start: 2007, end: 201211
  28. NOVAMINSULFON [Concomitant]
     Dosage: 2500 MG MILLIGRAM(S), DAILY DOSE
     Route: 048
     Dates: start: 2007, end: 201211
  29. CALCIUM [Concomitant]
     Indication: OSTEOPATHIC TREATMENT
     Dosage: 3 DF DOSAGE FORM, DAILY DOSE
     Route: 048
     Dates: start: 2009, end: 201211
  30. ARANESP [Concomitant]
     Indication: ANAEMIA
     Dosage: 30 MG MILLIGRAM(S), QW
     Route: 058
     Dates: start: 2012, end: 201203
  31. ALUMINUM HYDROXIDE [Concomitant]
     Indication: BLOOD PHOSPHORUS ABNORMAL
     Dosage: 1316 MG MILLIGRAM(S), DAILY DOSE
     Route: 048
     Dates: start: 20120927, end: 20121001
  32. ALUMINUM HYDROXIDE [Concomitant]
     Dosage: 2961 MG MILLIGRAM(S), DAILY DOSE
     Route: 048
     Dates: start: 20121002, end: 201211
  33. APONAL [Concomitant]
     Indication: DEPRESSION
     Dosage: 50 MG MILLIGRAM(S), DAILY DOSE
     Route: 048
     Dates: start: 20120927, end: 201211
  34. CALCIUMACETAT [Concomitant]
     Indication: BLOOD PHOSPHORUS ABNORMAL
     Dosage: 3800 MG MILLIGRAM(S), DAILY DOSE
     Route: 048
     Dates: start: 20120927, end: 20121004
  35. CALCIUMACETAT [Concomitant]
     Dosage: 2850 MG MILLIGRAM(S), DAILY DOSE
     Route: 048
     Dates: start: 20121005, end: 201211
  36. BICANORM [Concomitant]
     Indication: RENAL FAILURE CHRONIC
     Dosage: 6 G GRAM(S), DAILY DOSE
     Route: 048
     Dates: start: 20121001, end: 201211

REACTIONS (34)
  - Haematemesis [Fatal]
  - Aspiration [Fatal]
  - Organ failure [Fatal]
  - Renal failure acute [Fatal]
  - Nephrotic syndrome [Recovered/Resolved]
  - Oedema [Recovered/Resolved]
  - General physical health deterioration [Recovered/Resolved]
  - Hyponatraemia [Recovered/Resolved]
  - Nausea [Recovered/Resolved]
  - Dizziness [Recovered/Resolved]
  - Asthenia [Recovered/Resolved]
  - Blood sodium increased [Recovered/Resolved]
  - Oedema [Recovered/Resolved]
  - Cardiac failure [Recovered/Resolved]
  - Oedema peripheral [Recovered/Resolved]
  - Dyspnoea [Recovered/Resolved]
  - Dyspnoea [Recovered/Resolved]
  - Chest discomfort [Unknown]
  - Dyspepsia [Recovered/Resolved]
  - Dyspnoea [Recovered/Resolved]
  - Flank pain [Recovered/Resolved]
  - Peripheral coldness [Recovered/Resolved]
  - Arthralgia [Recovered/Resolved]
  - Asthenia [Recovered/Resolved]
  - Feeling cold [Recovered/Resolved]
  - Cough [Recovered/Resolved]
  - Oedema peripheral [Recovered/Resolved]
  - C-reactive protein increased [Recovered/Resolved]
  - Magnesium deficiency [Recovered/Resolved]
  - Chest pain [Unknown]
  - Wheezing [Unknown]
  - Muscle spasms [None]
  - Urine output decreased [Unknown]
  - Wrong technique in drug usage process [Unknown]
